FAERS Safety Report 10084654 (Version 1)
Quarter: 2014Q2

REPORT INFORMATION
  Report Type: Spontaneous
  Country: US (occurrence: None)
  Receive Date: 20140409
  Receipt Date: 20140409
  Transmission Date: 20141212
  Serious: Yes (Death)
  Sender: FDA-Public Use
  Company Number: ADR-2013UNK035

PATIENT
  Sex: Male

DRUGS (2)
  1. SERTRALINE HCL [Suspect]
     Indication: ANTIDEPRESSANT THERAPY
     Dosage: UNKNOWN/ DAY + ORAL
     Route: 048
  2. SERTRALINE HCL [Suspect]
     Indication: ANTIDEPRESSANT THERAPY
     Dosage: UNKNOWN/ DAY + ORAL
     Route: 048

REACTIONS (7)
  - Gun shot wound [None]
  - Homicide [None]
  - Completed suicide [None]
  - Divorced [None]
  - Psychotic disorder [None]
  - Condition aggravated [None]
  - Mental impairment [None]
